FAERS Safety Report 13782156 (Version 1)
Quarter: 2017Q3

REPORT INFORMATION
  Report Type: Spontaneous
  Country: US (occurrence: US)
  Receive Date: 20170724
  Receipt Date: 20170724
  Transmission Date: 20171127
  Serious: No
  Sender: FDA-Public Use
  Company Number: None

PATIENT
  Age: 64 Year
  Sex: Male
  Weight: 65 kg

DRUGS (1)
  1. POTASS PHOS SD #MMMO?ML 25 X 15ML [Suspect]
     Active Substance: POTASSIUM PHOSPHATE
     Indication: PANCREATIC CARCINOMA
     Route: 042
     Dates: start: 20170615, end: 20170620

REACTIONS (4)
  - Malaise [None]
  - Chills [None]
  - Pyrexia [None]
  - Product use issue [None]

NARRATIVE: CASE EVENT DATE: 20170620
